FAERS Safety Report 7432786-6 (Version None)
Quarter: 2011Q2

REPORT INFORMATION
  Report Type: 
  Country: None (occurrence: None)
  Receive Date: 20110422
  Receipt Date: 20110413
  Transmission Date: 20111010
  Serious: Yes (Hospitalization)
  Sender: FDA-Public Use
  Company Number: B0714671A

PATIENT
  Sex: Female
  Weight: 18 kg

DRUGS (2)
  1. TOPOTECAN [Suspect]
     Indication: NEUROBLASTOMA
     Dosage: 2.65MG CUMULATIVE DOSE
     Route: 065
     Dates: start: 20110222
  2. IODINE 131 [Suspect]
     Indication: NEUROBLASTOMA
     Dosage: 1712MBQ PER DAY
     Route: 065
     Dates: start: 20110223

REACTIONS (1)
  - FEBRILE BONE MARROW APLASIA [None]
